FAERS Safety Report 12329205 (Version 2)
Quarter: 2016Q2

REPORT INFORMATION
  Report Type: Spontaneous
  Country: US (occurrence: US)
  Receive Date: 20160503
  Receipt Date: 20160621
  Transmission Date: 20160815
  Serious: Yes (Hospitalization)
  Sender: FDA-Public Use
  Company Number: US-BAYER-2016-084773

PATIENT
  Age: 25 Year
  Sex: Female

DRUGS (13)
  1. DEPO-PROVERA [Concomitant]
     Active Substance: MEDROXYPROGESTERONE ACETATE
     Dosage: UNK
     Dates: start: 2012
  2. LISINOPRIL. [Concomitant]
     Active Substance: LISINOPRIL
  3. IBUPROFEN. [Concomitant]
     Active Substance: IBUPROFEN
  4. MIRENA [Suspect]
     Active Substance: LEVONORGESTREL
     Indication: CONTRACEPTION
     Dosage: 20 MCG/24HR, CONT
     Route: 015
     Dates: start: 20120227, end: 20130617
  5. GLIPIZIDE. [Concomitant]
     Active Substance: GLIPIZIDE
  6. COLACE [Concomitant]
     Active Substance: DOCUSATE SODIUM
  7. HUMULIN N [Concomitant]
     Active Substance: INSULIN HUMAN
     Dosage: 100 U/ML, UNK
  8. ASPIRIN. [Concomitant]
     Active Substance: ASPIRIN
  9. PRENATAL VITAMINS [Concomitant]
     Active Substance: VITAMINS
  10. CLINDAMYCIN HYDROCHLORIDE. [Concomitant]
     Active Substance: CLINDAMYCIN HYDROCHLORIDE
     Dosage: 300 MG, UNK
  11. BYETTA [Concomitant]
     Active Substance: EXENATIDE
  12. PRAVASTATIN SODIUM. [Concomitant]
     Active Substance: PRAVASTATIN SODIUM
  13. ACETAMINOPHEN W/OXYCODONE [Concomitant]
     Active Substance: ACETAMINOPHEN\OXYCODONE HYDROCHLORIDE

REACTIONS (3)
  - Pelvic pain [None]
  - Device issue [None]
  - Uterine perforation [None]

NARRATIVE: CASE EVENT DATE: 201202
